FAERS Safety Report 10157740 (Version 2)
Quarter: 2014Q2

REPORT INFORMATION
  Report Type: Spontaneous
  Country: CH (occurrence: CH)
  Receive Date: 20140507
  Receipt Date: 20140519
  Transmission Date: 20141212
  Serious: Yes (Death, Hospitalization)
  Sender: FDA-Public Use
  Company Number: CH-B.I. PHARMACEUTICALS,INC./RIDGEFIELD-2014-BI-20098SI

PATIENT
  Age: 87 Year
  Sex: Female
  Weight: 54 kg

DRUGS (12)
  1. PRADAXA [Suspect]
     Indication: ATRIAL FIBRILLATION
     Dosage: 220 MG
     Route: 048
     Dates: start: 20140327, end: 20140410
  2. FENTANYL TTS [Concomitant]
     Route: 065
  3. CARVEDILOL [Concomitant]
     Route: 065
  4. TORAMID [Concomitant]
     Route: 065
  5. HEPARIN [Concomitant]
     Route: 065
  6. PRAVALOTIN [Concomitant]
     Route: 065
  7. CITALOPRAM [Concomitant]
     Route: 065
  8. ELTROXIN [Concomitant]
     Route: 065
  9. ZOLPIDEM [Concomitant]
     Route: 065
  10. SYMBICORT [Concomitant]
     Route: 065
  11. PENICILIN [Concomitant]
     Route: 065
  12. DEPONIT [Concomitant]
     Route: 065

REACTIONS (4)
  - Sepsis [Fatal]
  - Renal failure [Fatal]
  - Cardiac failure [Fatal]
  - Blood urine present [Fatal]
